FAERS Safety Report 5373858-X (Version None)
Quarter: 2007Q2

REPORT INFORMATION
  Report Type: 
  Country: None (occurrence: None)
  Receive Date: 20070628
  Receipt Date: 20070619
  Transmission Date: 20071010
  Serious: Yes (Other)
  Sender: FDA-Public Use
  Company Number: AU-PFIZER INC-2007035732

PATIENT
  Sex: Female

DRUGS (4)
  1. LIPITOR [Suspect]
     Route: 048
     Dates: start: 20040415, end: 20070511
  2. PANTOPRAZOLE SODIUM [Concomitant]
  3. NOTEN [Concomitant]
  4. PREMARIN [Concomitant]

REACTIONS (11)
  - CHOKING SENSATION [None]
  - CHRONIC FATIGUE SYNDROME [None]
  - CONSTIPATION [None]
  - DIZZINESS [None]
  - DYSPHAGIA [None]
  - GAIT DISTURBANCE [None]
  - HEADACHE [None]
  - HYPOAESTHESIA FACIAL [None]
  - MUSCULAR WEAKNESS [None]
  - MYALGIA [None]
  - NAUSEA [None]
